FAERS Safety Report 7055217-7 (Version None)
Quarter: 2010Q4

REPORT INFORMATION
  Report Type: 
  Country: None (occurrence: None)
  Receive Date: 20101021
  Receipt Date: 20101014
  Transmission Date: 20110411
  Serious: Yes (Other)
  Sender: FDA-Public Use
  Company Number: US-GENZYME-CERD-1000019

PATIENT

DRUGS (2)
  1. CEREDASE [Suspect]
     Indication: GAUCHER'S DISEASE
     Dosage: 2.3 U/KG, 2X/W
     Route: 042
     Dates: start: 19900701
  2. CEREDASE [Suspect]
     Dosage: 30 U/KG, Q4W
     Route: 042
     Dates: start: 19900101

REACTIONS (1)
  - PULMONARY HYPERTENSION [None]
